FAERS Safety Report 7543577-X (Version None)
Quarter: 2011Q2

REPORT INFORMATION
  Report Type: 
  Country: None (occurrence: None)
  Receive Date: 20110613
  Receipt Date: 20020924
  Transmission Date: 20111010
  Serious: Yes (Death)
  Sender: FDA-Public Use
  Company Number: PHHO2002NL10699

PATIENT
  Sex: Male

DRUGS (3)
  1. METFORMIN HCL [Concomitant]
  2. DIOVAN [Suspect]
     Indication: HYPERTENSION
  3. NOVOMIX [Concomitant]
     Indication: DIABETES MELLITUS

REACTIONS (2)
  - CARDIAC ASTHMA [None]
  - CIRCULATORY COLLAPSE [None]
